FAERS Safety Report 17557316 (Version 1)
Quarter: 2020Q1

REPORT INFORMATION
  Report Type: Spontaneous
  Country: US (occurrence: US)
  Receive Date: 20200318
  Receipt Date: 20200318
  Transmission Date: 20200409
  Serious: No
  Sender: FDA-Public Use
  Company Number: US-BIOMARINAP-US-2020-128701

PATIENT
  Age: 38 Year
  Sex: Female

DRUGS (1)
  1. NAGLAZYME [Suspect]
     Active Substance: GALSULFASE
     Indication: MUCOPOLYSACCHARIDOSIS VI
     Dosage: 60 MILLIGRAM, QW
     Route: 042
     Dates: start: 20150123

REACTIONS (4)
  - Product dose omission [Unknown]
  - Influenza [Recovering/Resolving]
  - Influenza like illness [Recovering/Resolving]
  - Nasopharyngitis [Recovering/Resolving]
